FAERS Safety Report 22890339 (Version 2)
Quarter: 2023Q4

REPORT INFORMATION
  Report Type: Other
  Country: CA (occurrence: CA)
  Receive Date: 20230831
  Receipt Date: 20231004
  Transmission Date: 20240110
  Serious: Yes (Life-Threatening, Hospitalization, Other)
  Sender: FDA-Public Use
  Company Number: None

PATIENT
  Age: 4 Week
  Sex: Female
  Weight: 3 kg

DRUGS (1)
  1. NITRIC OXIDE [Suspect]
     Active Substance: NITRIC OXIDE
     Indication: Atrial tachycardia
     Dosage: UNKNOWN
     Route: 055

REACTIONS (4)
  - Haemodynamic instability [Recovering/Resolving]
  - Pulmonary arterial hypertension [Recovering/Resolving]
  - Pulmonary oedema [Recovering/Resolving]
  - Right ventricular failure [Recovering/Resolving]
